FAERS Safety Report 4607585-0 (Version None)
Quarter: 2005Q1

REPORT INFORMATION
  Report Type: 
  Country: None (occurrence: None)
  Receive Date: 20050309
  Receipt Date: 20050218
  Transmission Date: 20050727
  Serious: Yes (Hospitalization, Other)
  Sender: FDA-Public Use
  Company Number: DE_041214831

PATIENT
  Age: 84 Year
  Sex: Female

DRUGS (3)
  1. YENTREVE (DULOXETINE HYDROCHLORIDE) [Suspect]
     Indication: STRESS INCONTINENCE
     Dosage: 40 MG DAY
     Dates: start: 20041006, end: 20041011
  2. RAMIPRIL [Concomitant]
  3. ALLOPURINOL [Concomitant]

REACTIONS (8)
  - DEHYDRATION [None]
  - DEPRESSED LEVEL OF CONSCIOUSNESS [None]
  - EATING DISORDER [None]
  - ELECTROLYTE IMBALANCE [None]
  - FLUID INTAKE REDUCED [None]
  - HYPOKALAEMIA [None]
  - HYPONATRAEMIA [None]
  - URINARY RETENTION [None]
